FAERS Safety Report 8920056 (Version 4)
Quarter: 2013Q1

REPORT INFORMATION
  Report Type: Spontaneous
  Country: US (occurrence: US)
  Receive Date: 20121121
  Receipt Date: 20130315
  Transmission Date: 20140127
  Serious: Yes (Hospitalization)
  Sender: FDA-Public Use
  Company Number: US-MERCK-1211USA007255

PATIENT
  Sex: Female

DRUGS (1)
  1. JANUMET [Suspect]
     Indication: DIABETES MELLITUS
     Dosage: 50MG/1000MG; TWICE DAILY
     Route: 048
     Dates: start: 20101003, end: 20110602

REACTIONS (6)
  - Chest pain [Recovering/Resolving]
  - Dyspnoea [Recovering/Resolving]
  - Stress [Recovering/Resolving]
  - Irritable bowel syndrome [Recovering/Resolving]
  - Lactose intolerance [Recovering/Resolving]
  - Incorrect dose administered [Unknown]
